FAERS Safety Report 8298415-7 (Version None)
Quarter: 2012Q2

REPORT INFORMATION
  Report Type: 
  Country: None (occurrence: None)
  Receive Date: 20120419
  Receipt Date: 20120410
  Transmission Date: 20120825
  Serious: Yes (Death)
  Sender: FDA-Public Use
  Company Number: CA-ROCHE-1059141

PATIENT
  Sex: Female
  Weight: 77.18 kg

DRUGS (4)
  1. NORVASC [Concomitant]
  2. ESCITALOPRAM [Concomitant]
  3. TRAZODONE HCL [Concomitant]
  4. AVASTIN [Suspect]
     Indication: COLORECTAL CANCER
     Route: 042
     Dates: start: 20110428, end: 20120207

REACTIONS (1)
  - DISEASE PROGRESSION [None]
